FAERS Safety Report 7909201-9 (Version None)
Quarter: 2011Q4

REPORT INFORMATION
  Report Type: 
  Country: None (occurrence: None)
  Receive Date: 20111111
  Receipt Date: 20110901
  Transmission Date: 20120403
  Serious: No
  Sender: FDA-Public Use
  Company Number: US-GLAXOSMITHKLINE-A0943199A

PATIENT
  Sex: Male

DRUGS (12)
  1. COREG [Suspect]
     Indication: CARDIOMYOPATHY
     Dosage: 6.25MG TWICE PER DAY
     Route: 048
     Dates: start: 20110201
  2. FINASTERIDE [Concomitant]
  3. ACIPHEX [Concomitant]
  4. MUCINEX [Concomitant]
  5. CRESTOR [Concomitant]
  6. SKELAXIN [Concomitant]
  7. SINGULAIR [Concomitant]
  8. NEURONTIN [Concomitant]
  9. THEOPHYLLINE [Concomitant]
  10. OXYCONTIN [Concomitant]
  11. COUMADIN [Concomitant]
  12. ALLEGRA [Concomitant]

REACTIONS (1)
  - ABDOMINAL PAIN [None]
